FAERS Safety Report 10477580 (Version 2)
Quarter: 2014Q3

REPORT INFORMATION
  Report Type: Report from Study
  Country: BE (occurrence: BE)
  Receive Date: 20140926
  Receipt Date: 20140926
  Transmission Date: 20150326
  Serious: Yes (Hospitalization)
  Sender: FDA-Public Use
  Company Number: PHHO2013BE005408

PATIENT

DRUGS (9)
  1. TRANXENE T-TAB [Concomitant]
     Active Substance: CLORAZEPATE DIPOTASSIUM
     Indication: DEPRESSION
     Dosage: 30 MG, QD
     Route: 048
     Dates: start: 20111216, end: 20130416
  2. SOM230 [Suspect]
     Active Substance: PASIREOTIDE
     Dosage: UNK
     Dates: start: 20130205, end: 20130416
  3. D VITAL [Concomitant]
     Indication: NUTRITIONAL SUPPLEMENTATION
     Dosage: 1000/1AMP/DAY
     Route: 048
     Dates: start: 20130107, end: 20130415
  4. CYMBALTA [Concomitant]
     Active Substance: DULOXETINE HYDROCHLORIDE
     Indication: DEPRESSION
     Dosage: 60 MG, QD
     Route: 048
     Dates: start: 20111216, end: 20130416
  5. ANAFRANIL [Concomitant]
     Active Substance: CLOMIPRAMINE HYDROCHLORIDE
     Indication: DEPRESSION
     Dosage: 75 MG, QD
     Route: 048
     Dates: start: 20111216, end: 20130416
  6. XANAX [Concomitant]
     Active Substance: ALPRAZOLAM
     Indication: DEPRESSION
     Dosage: 1 MG, QD
     Route: 048
     Dates: start: 20030521, end: 20130416
  7. SUPRADYN [Concomitant]
     Active Substance: ASCORBIC ACID\MINERALS\VITAMINS
     Indication: NUTRITIONAL SUPPLEMENTATION
     Dosage: 1 DF,(1 TABLET) QD
     Dates: start: 20111216, end: 20130416
  8. STAURODORM [Concomitant]
     Indication: INSOMNIA
     Dosage: 2 MG, QD
     Route: 048
     Dates: start: 20111216, end: 20130415
  9. BEFACT FORTE [Concomitant]
     Indication: NUTRITIONAL SUPPLEMENTATION
     Dosage: 510 MG, QD
     Route: 048
     Dates: start: 20111216, end: 20130416

REACTIONS (1)
  - Hypoglycaemia [Recovered/Resolved]

NARRATIVE: CASE EVENT DATE: 20130416
